FAERS Safety Report 23321501 (Version 1)
Quarter: 2023Q4

REPORT INFORMATION
  Report Type: Spontaneous
  Country: US (occurrence: None)
  Receive Date: 20231220
  Receipt Date: 20231220
  Transmission Date: 20240110
  Serious: No
  Sender: FDA-Public Use
  Company Number: None

PATIENT
  Age: 37 Year
  Sex: Female

DRUGS (4)
  1. AMBRISENTAN [Suspect]
     Active Substance: AMBRISENTAN
     Indication: Pulmonary arterial hypertension
  2. TYVASO [Concomitant]
     Active Substance: TREPROSTINIL
  3. FUROSEMIDE [Concomitant]
     Active Substance: FUROSEMIDE
  4. SILDENAFIL [Concomitant]
     Active Substance: SILDENAFIL

REACTIONS (1)
  - Headache [None]

NARRATIVE: CASE EVENT DATE: 20231219
